FAERS Safety Report 7201738-3 (Version None)
Quarter: 2010Q4

REPORT INFORMATION
  Report Type: 
  Country: None (occurrence: None)
  Receive Date: 20101229
  Receipt Date: 20101222
  Transmission Date: 20110411
  Serious: Yes (Death)
  Sender: FDA-Public Use
  Company Number: CN-ROCHE-749693

PATIENT
  Age: 55 Year
  Sex: Male
  Weight: 80 kg

DRUGS (2)
  1. CAPECITABINE [Suspect]
     Route: 048
     Dates: start: 20100520, end: 20101015
  2. OXALIPLATIN [Concomitant]
     Route: 041
     Dates: start: 20100520, end: 20101015

REACTIONS (2)
  - COUGH [None]
  - DEATH [None]
